FAERS Safety Report 22240786 (Version 2)
Quarter: 2023Q2

REPORT INFORMATION
  Report Type: Spontaneous
  Country: US (occurrence: US)
  Receive Date: 20230421
  Receipt Date: 20230428
  Transmission Date: 20230721
  Serious: No
  Sender: FDA-Public Use
  Company Number: US-JNJFOC-20230427820

PATIENT
  Age: 65 Year
  Sex: Female
  Weight: 68 kg

DRUGS (7)
  1. IMODIUM [Suspect]
     Active Substance: LOPERAMIDE HYDROCHLORIDE
     Indication: Diarrhoea
     Route: 065
  2. TYVASO [Concomitant]
     Active Substance: TREPROSTINIL
     Indication: Pulmonary arterial hypertension
     Dosage: DOSE: 48 G, QID, INHALATION
     Route: 065
     Dates: start: 20230317
  3. TYVASO [Concomitant]
     Active Substance: TREPROSTINIL
     Route: 065
  4. TYVASO [Concomitant]
     Active Substance: TREPROSTINIL
     Dosage: DOSE: 16 G, QID, INHALATION
     Route: 065
  5. TYVASO [Concomitant]
     Active Substance: TREPROSTINIL
     Dosage: DOSE: 32 G, QID, INHALATION
     Route: 065
  6. TYVASO [Concomitant]
     Active Substance: TREPROSTINIL
     Route: 065
  7. OFEV [Concomitant]
     Active Substance: NINTEDANIB
     Indication: Product used for unknown indication
     Route: 065

REACTIONS (1)
  - Therapy non-responder [Unknown]
